FAERS Safety Report 5904409-6 (Version None)
Quarter: 2008Q4

REPORT INFORMATION
  Report Type: 
  Country: None (occurrence: None)
  Receive Date: 20081001
  Receipt Date: 20080924
  Transmission Date: 20090506
  Serious: Yes (Hospitalization)
  Sender: FDA-Public Use
  Company Number: US-BRISTOL-MYERS SQUIBB COMPANY-14346951

PATIENT
  Age: 54 Year
  Sex: Female
  Weight: 40 kg

DRUGS (2)
  1. ERBITUX [Suspect]
     Indication: CERVIX CARCINOMA
     Dosage: INITIATED ON :25AUG08
     Dates: start: 20080922, end: 20080922
  2. CISPLATIN [Suspect]
     Indication: CERVIX CARCINOMA
     Dosage: INITIATED ON :25AUG08
     Dates: start: 20080922, end: 20080922

REACTIONS (4)
  - ANOREXIA [None]
  - DEHYDRATION [None]
  - NAUSEA [None]
  - VOMITING [None]
